FAERS Safety Report 24119604 (Version 1)
Quarter: 2024Q3

REPORT INFORMATION
  Report Type: Spontaneous
  Country: US (occurrence: None)
  Receive Date: 20240718
  Receipt Date: 20240718
  Transmission Date: 20241016
  Serious: Yes (Disabling, Other)
  Sender: Public
  Company Number: None

PATIENT
  Age: 36 Year
  Sex: Male
  Weight: 60 kg

DRUGS (1)
  1. ULTRAVIST [Suspect]
     Active Substance: IOPROMIDE
     Indication: X-ray with contrast
     Dosage: OTHER STRENGTH : CC;?OTHER QUANTITY : 1 INJECTION(S);?
     Route: 042
     Dates: start: 20240425, end: 20240426

REACTIONS (10)
  - Urine output decreased [None]
  - Back pain [None]
  - Flank pain [None]
  - Muscular weakness [None]
  - Hypoaesthesia [None]
  - Nausea [None]
  - Chills [None]
  - Dyspnoea [None]
  - Fatigue [None]
  - Night sweats [None]

NARRATIVE: CASE EVENT DATE: 20240425
